FAERS Safety Report 8121852-8 (Version None)
Quarter: 2012Q1

REPORT INFORMATION
  Report Type: 
  Country: None (occurrence: None)
  Receive Date: 20120208
  Receipt Date: 20120201
  Transmission Date: 20120608
  Serious: Yes (Other)
  Sender: FDA-Public Use
  Company Number: GB-ABBOTT-12P-167-0897888-00

PATIENT
  Age: 4 Year
  Sex: Female

DRUGS (4)
  1. ERGOCALCIFEROL [Concomitant]
     Indication: PRODUCT USED FOR UNKNOWN INDICATION
  2. SYTRON [Concomitant]
     Indication: PRODUCT USED FOR UNKNOWN INDICATION
  3. VALPROIC ACID [Suspect]
     Indication: EPILEPSY
     Route: 048
  4. LAMOTRIGINE [Concomitant]
     Indication: PRODUCT USED FOR UNKNOWN INDICATION
     Dates: end: 20111019

REACTIONS (5)
  - CONDUCT DISORDER [None]
  - GAIT DISTURBANCE [None]
  - SOMNOLENCE [None]
  - VOMITING [None]
  - CONVULSION [None]
